FAERS Safety Report 9577864 (Version 1)
Quarter: 2013Q4

REPORT INFORMATION
  Report Type: Spontaneous
  Country: US (occurrence: US)
  Receive Date: 20131001
  Receipt Date: 20131001
  Transmission Date: 20140711
  Serious: No
  Sender: FDA-Public Use
  Company Number: US-AMGEN-USASP2013009892

PATIENT
  Age: 28 Year
  Sex: Male
  Weight: 81.63 kg

DRUGS (4)
  1. ENBREL [Suspect]
     Indication: PRODUCT USED FOR UNKNOWN INDICATION
     Dosage: 50 MG, 2 TIMES/WK
     Route: 058
     Dates: start: 201209
  2. ENBREL [Suspect]
  3. HUMIRA [Concomitant]
     Dosage: UNK
  4. LEXAPRO [Concomitant]
     Dosage: 10 MG, UNK

REACTIONS (1)
  - Drug ineffective [Unknown]
